FAERS Safety Report 4658910-6 (Version None)
Quarter: 2005Q2

REPORT INFORMATION
  Report Type: 
  Country: None (occurrence: None)
  Receive Date: 20050509
  Receipt Date: 20050425
  Transmission Date: 20051028
  Serious: Yes (Hospitalization)
  Sender: FDA-Public Use
  Company Number: 05P-163-0294944-00

PATIENT
  Age: 76 Year
  Sex: Female

DRUGS (8)
  1. TRICOR [Suspect]
     Indication: BLOOD TRIGLYCERIDES INCREASED
     Dosage: SEE IMAGE
     Route: 048
     Dates: start: 20010101, end: 20050201
  2. TRICOR [Suspect]
     Indication: BLOOD TRIGLYCERIDES INCREASED
     Dosage: SEE IMAGE
     Route: 048
     Dates: start: 20050201, end: 20050201
  3. TRICOR [Suspect]
     Indication: BLOOD TRIGLYCERIDES INCREASED
     Dosage: SEE IMAGE
     Route: 048
     Dates: start: 20050201, end: 20050201
  4. ATORVASTATIN CALCIUM [Concomitant]
  5. DIGOXIN [Concomitant]
  6. COUMADIN [Concomitant]
  7. AMIODARONE HYDROCHLORIDE [Concomitant]
  8. SCALACTIN [Concomitant]

REACTIONS (2)
  - CORONARY ARTERY DISEASE [None]
  - RASH [None]
